FAERS Safety Report 18970440 (Version 5)
Quarter: 2024Q1

REPORT INFORMATION
  Report Type: Spontaneous
  Country: GB (occurrence: GB)
  Receive Date: 20210305
  Receipt Date: 20240319
  Transmission Date: 20240410
  Serious: Yes (Life-Threatening, Hospitalization, Other)
  Sender: FDA-Public Use
  Company Number: GB-CELLTRION INC.-2021GB002665

PATIENT

DRUGS (113)
  1. RITUXIMAB [Suspect]
     Active Substance: RITUXIMAB
     Indication: Follicular lymphoma
     Dosage: 50MG/M2 EVERY 3 WEEKS; ON 08/JUL/2020, FROM 12:00 PM TO 3:34 PM, THE PATIENT RECEIVED THE MOST RECEN
     Route: 042
     Dates: start: 20200708
  2. RITUXIMAB [Suspect]
     Active Substance: RITUXIMAB
     Indication: Diffuse large B-cell lymphoma
     Dosage: UNK
  3. RITUXIMAB [Suspect]
     Active Substance: RITUXIMAB
     Indication: Non-Hodgkin^s lymphoma
     Dosage: DATE OF MOST RECENT DOSE OF RITUXIMAB (375 MG/M2) PRIOR TO ADVERSE EVENT: 29/JUL/2020 AT 11:00 AM AN
     Route: 041
     Dates: start: 20200708
  4. RITUXIMAB [Suspect]
     Active Substance: RITUXIMAB
     Dosage: 375 MG/M2
     Route: 042
     Dates: start: 20200729
  5. RITUXIMAB [Suspect]
     Active Substance: RITUXIMAB
     Dosage: 450 MG/M2, EVERY 3 WEEKS
     Route: 042
     Dates: start: 20200728
  6. RITUXIMAB [Suspect]
     Active Substance: RITUXIMAB
     Dosage: 375 MG/M2, EVERY 3 WEEKS
     Route: 042
     Dates: start: 20200826, end: 20200826
  7. RITUXIMAB [Suspect]
     Active Substance: RITUXIMAB
     Dosage: 375 MG/M2
     Route: 042
     Dates: start: 20200923, end: 20200923
  8. RITUXIMAB [Suspect]
     Active Substance: RITUXIMAB
     Dosage: UNK
  9. RITUXIMAB [Suspect]
     Active Substance: RITUXIMAB
     Dosage: 50MG/M2 EVERY 3 WEEKS; ON 08/JUL/2020, FROM 12:00 PM TO 3:34 PM, THE PATIENT RECEIVED THE MOST RECEN
     Route: 042
     Dates: start: 20200708
  10. CYCLOPHOSPHAMIDE [Suspect]
     Active Substance: CYCLOPHOSPHAMIDE
     Indication: Diffuse large B-cell lymphoma
     Dosage: 1120MG/M2 EVERY 3 WEEKS; ON 08/JUL/2020, FROM 4:00 PM TO 5:58 PM, THE PATIENT RECEIVED THE MOST RECE
     Route: 042
     Dates: start: 20200708
  11. CYCLOPHOSPHAMIDE [Suspect]
     Active Substance: CYCLOPHOSPHAMIDE
     Indication: Non-Hodgkin^s lymphoma
     Dosage: 750 MG/M2
  12. CYCLOPHOSPHAMIDE [Suspect]
     Active Substance: CYCLOPHOSPHAMIDE
     Indication: Follicular lymphoma
  13. CYCLOPHOSPHAMIDE [Suspect]
     Active Substance: CYCLOPHOSPHAMIDE
     Indication: Diffuse large B-cell lymphoma
     Dosage: UNK
  14. CYCLOPHOSPHAMIDE [Suspect]
     Active Substance: CYCLOPHOSPHAMIDE
     Indication: Non-Hodgkin^s lymphoma
     Dosage: UNK
  15. CYCLOPHOSPHAMIDE [Suspect]
     Active Substance: CYCLOPHOSPHAMIDE
     Indication: Follicular lymphoma
     Dosage: UNK
  16. CYCLOPHOSPHAMIDE [Suspect]
     Active Substance: CYCLOPHOSPHAMIDE
     Indication: Diffuse large B-cell lymphoma
     Dosage: 1120 MG/M2, EVERY 3WK, DATE OF MOST RECENT DOSE 750 MG/M2 OF CYCLOPHOSPHAMIDE PRIOR TO AE: 29/JUL/2
     Route: 042
     Dates: start: 20200708
  17. CYCLOPHOSPHAMIDE [Suspect]
     Active Substance: CYCLOPHOSPHAMIDE
     Dosage: 1120 MG/M2, EVERY 3WK, DATE OF MOST RECENT DOSE 750 MG/M2 OF CYCLOPHOSPHAMIDE PRIOR TO AE: 29/JUL/2
     Route: 042
     Dates: start: 20200708
  18. DOXORUBICIN HYDROCHLORIDE [Suspect]
     Active Substance: DOXORUBICIN HYDROCHLORIDE
     Indication: Diffuse large B-cell lymphoma
     Dosage: 70 MG/M2, EVERY 3 WK, DATE OF MOST RECENT DOSE OF DOXORUBICIN (50 MG/M2) WAS ON29/JUL/2020 AT 3:00
     Route: 042
     Dates: start: 20200708
  19. DOXORUBICIN HYDROCHLORIDE [Suspect]
     Active Substance: DOXORUBICIN HYDROCHLORIDE
     Dosage: 70 MG/M2, EVERY 3 WK, DATE OF MOST RECENT DOSE OF DOXORUBICIN (50 MG/M2) WAS ON29/JUL/2020 AT 3
     Route: 042
     Dates: start: 20200708
  20. DOXORUBICIN [Suspect]
     Active Substance: DOXORUBICIN
     Indication: Diffuse large B-cell lymphoma
     Dosage: 70 MG/M2, TIW
     Route: 042
     Dates: start: 20200708
  21. DOXORUBICIN [Suspect]
     Active Substance: DOXORUBICIN
     Indication: Non-Hodgkin^s lymphoma
     Dosage: 50 MG/M2
     Route: 042
     Dates: start: 20200729
  22. DOXORUBICIN [Suspect]
     Active Substance: DOXORUBICIN
     Indication: Follicular lymphoma
  23. DOXORUBICIN [Suspect]
     Active Substance: DOXORUBICIN
     Indication: Diffuse large B-cell lymphoma
     Dosage: UNK
  24. DOXORUBICIN [Suspect]
     Active Substance: DOXORUBICIN
     Indication: Non-Hodgkin^s lymphoma
     Dosage: UNK
  25. DOXORUBICIN [Suspect]
     Active Substance: DOXORUBICIN
     Indication: Follicular lymphoma
     Dosage: UNK
  26. GLOFITAMAB [Suspect]
     Active Substance: GLOFITAMAB
     Indication: Follicular lymphoma
     Dosage: 2.5 MILLIGRAM, MOST RECENT DOSE OF RO7082859, 0.5 MG (TOTAL VOLUME 25ML) PRIOR TO NEUTROPENIA: 02/SE
     Route: 042
     Dates: start: 20200805
  27. GLOFITAMAB [Suspect]
     Active Substance: GLOFITAMAB
     Indication: Follicular lymphoma
  28. GLOFITAMAB [Suspect]
     Active Substance: GLOFITAMAB
     Dosage: UNK
  29. PREDNISOLONE [Suspect]
     Active Substance: PREDNISOLONE
     Indication: Diffuse large B-cell lymphoma
     Dosage: 50 MG, DATE OF MOST RECENT DOSE OF STUDY DRUG PRIOR (50 MG) TO AE 31/JUL/2020PREDNISONE
     Route: 048
     Dates: start: 20200701
  30. PREDNISOLONE [Suspect]
     Active Substance: PREDNISOLONE
     Indication: Non-Hodgkin^s lymphoma
     Dosage: 50 MG
     Route: 048
     Dates: start: 20200802
  31. PREDNISOLONE [Suspect]
     Active Substance: PREDNISOLONE
     Indication: Follicular lymphoma
     Dosage: 50 MG
     Route: 048
     Dates: start: 20200731
  32. PREDNISOLONE [Suspect]
     Active Substance: PREDNISOLONE
     Dosage: MOST RECENT DOSE (50 MG) PRIOR TO BOTH AE: 02/AUG/2020
     Route: 048
     Dates: start: 20200708
  33. TOCILIZUMAB [Suspect]
     Active Substance: TOCILIZUMAB
     Indication: Cytokine release syndrome
     Dosage: UNK
  34. TOCILIZUMAB [Suspect]
     Active Substance: TOCILIZUMAB
     Dosage: UNK
  35. TOCILIZUMAB [Suspect]
     Active Substance: TOCILIZUMAB
     Dosage: UNK
  36. TOCILIZUMAB [Suspect]
     Active Substance: TOCILIZUMAB
     Dosage: 400 MG, START DATE OF MOST RECENT DOSE OF STUDY DRUG PRIOR TO SAE 01/OCT/2020 2:56 PM;
     Route: 042
     Dates: start: 20201001
  37. TOCILIZUMAB [Suspect]
     Active Substance: TOCILIZUMAB
     Dosage: UNK
     Route: 042
     Dates: start: 20201002, end: 20201002
  38. TOCILIZUMAB [Suspect]
     Active Substance: TOCILIZUMAB
     Dosage: UNK
     Route: 042
     Dates: start: 20200903, end: 20200903
  39. TOCILIZUMAB [Suspect]
     Active Substance: TOCILIZUMAB
     Dosage: UNK
     Route: 042
     Dates: start: 20200805, end: 20200805
  40. TOCILIZUMAB [Suspect]
     Active Substance: TOCILIZUMAB
     Dosage: 401.6 MG,MOST RECENT DOSE OF TOCILIZUMAB (400 MG) PRIOR TO AE 03/SEP/2020 07:56 PM TO 07:57 PM,END T
     Route: 042
     Dates: start: 20200805
  41. VINCRISTINE [Suspect]
     Active Substance: VINCRISTINE
     Indication: Diffuse large B-cell lymphoma
     Dosage: 2MG/M2 EVERY 3 WEEKS; ON 08/JUL/2020, FROM 4:30 PM TO 4:40 PM, THE PATIENT RECEIVED THE MOST RECENT
     Route: 042
     Dates: start: 20200708
  42. VINCRISTINE [Suspect]
     Active Substance: VINCRISTINE
     Indication: Non-Hodgkin^s lymphoma
     Dosage: 1.4 MG/M2
     Route: 065
     Dates: start: 20200729
  43. VINCRISTINE [Suspect]
     Active Substance: VINCRISTINE
     Indication: Follicular lymphoma
     Dosage: 6 MG/M2, MOST RECENT DOSE PRIOR TO FEBRILE NEUTROPENIA, ALANINE AMINO TRANSFERASE ELEVATED 1.4 MG/M2
     Route: 042
     Dates: start: 20200708
  44. VINCRISTINE [Suspect]
     Active Substance: VINCRISTINE
     Indication: Diffuse large B-cell lymphoma
     Dosage: UNK
  45. VINCRISTINE [Suspect]
     Active Substance: VINCRISTINE
     Indication: Non-Hodgkin^s lymphoma
     Dosage: UNK
  46. VINCRISTINE [Suspect]
     Active Substance: VINCRISTINE
     Indication: Follicular lymphoma
     Dosage: UNK
  47. VINCRISTINE [Suspect]
     Active Substance: VINCRISTINE
     Indication: Diffuse large B-cell lymphoma
     Dosage: 2 MG/M2, EVERY 3 WEEKS, DATE OF MOST RECENT DOSE OF VINCRISTINE (1.4 MG/M2) TO ADVERSE EVENT WAS ON
     Route: 042
     Dates: start: 20200708
  48. VINCRISTINE [Suspect]
     Active Substance: VINCRISTINE
     Dosage: 2 MG/M2, EVERY 3 WEEKS, DATE OF MOST RECENT DOSE OF VINCRISTINE (1.4 MG/M2) TO ADVERSE EVENT WAS ON
     Route: 042
     Dates: start: 20200708
  49. ALLOPURINOL [Concomitant]
     Active Substance: ALLOPURINOL
     Indication: Tumour lysis syndrome
     Dosage: UNK, FOR TLS PROTECTION; ;
     Route: 065
     Dates: start: 20200720, end: 20200806
  50. ALLOPURINOL [Concomitant]
     Active Substance: ALLOPURINOL
     Dosage: 300 MG
     Route: 065
     Dates: start: 20200710
  51. CALCIUM CARBONATE\CHOLECALCIFEROL [Concomitant]
     Active Substance: CALCIUM CARBONATE\CHOLECALCIFEROL
     Indication: Osteoporosis
     Dosage: UNK
     Dates: start: 2018
  52. ACYCLOVIR [Concomitant]
     Active Substance: ACYCLOVIR
     Indication: Product used for unknown indication
     Dosage: 200 MG
     Route: 065
     Dates: start: 20200708
  53. ACYCLOVIR [Concomitant]
     Active Substance: ACYCLOVIR
     Dosage: UNK, FOR VIRAL PROTECTION.; ;
     Dates: start: 20200608, end: 20200806
  54. BENDAMUSTINE [Concomitant]
     Active Substance: BENDAMUSTINE
     Indication: Cytokine release syndrome
     Dosage: UNK
     Route: 065
  55. CALCIUM [Concomitant]
     Active Substance: CALCIUM
     Indication: Product used for unknown indication
     Dosage: UNK, (START DATE: 2018)
     Route: 065
     Dates: start: 2018
  56. CALCIUM CARBONATE\CHOLECALCIFEROL [Concomitant]
     Active Substance: CALCIUM CARBONATE\CHOLECALCIFEROL
     Indication: Osteoporosis
     Dosage: UNK
     Route: 065
     Dates: start: 2018
  57. CHLORPHENIRAMINE MALEATE [Concomitant]
     Active Substance: CHLORPHENIRAMINE MALEATE
     Indication: Cytokine release syndrome
     Dosage: 10 MG
     Route: 042
     Dates: start: 20200805, end: 20200805
  58. CHLORPHENIRAMINE MALEATE [Concomitant]
     Active Substance: CHLORPHENIRAMINE MALEATE
     Indication: Prophylaxis
     Dosage: 10 MILLIGRAM
     Route: 042
     Dates: start: 20200814, end: 20200814
  59. CHLORPHENIRAMINE MALEATE [Concomitant]
     Active Substance: CHLORPHENIRAMINE MALEATE
     Dosage: 10 MG
     Route: 042
     Dates: start: 20200902, end: 20200902
  60. CHLORPHENIRAMINE MALEATE [Concomitant]
     Active Substance: CHLORPHENIRAMINE MALEATE
     Dosage: 10 MG
     Route: 042
     Dates: start: 20200930, end: 20200930
  61. CHLORPHENIRAMINE MALEATE [Concomitant]
     Active Substance: CHLORPHENIRAMINE MALEATE
     Dosage: 10 MG
     Route: 042
     Dates: start: 20200808, end: 20200808
  62. CHLORPHENIRAMINE MALEATE [Concomitant]
     Active Substance: CHLORPHENIRAMINE MALEATE
     Dosage: 10 MG
     Route: 042
     Dates: start: 20200923, end: 20200923
  63. CHLORPHENIRAMINE MALEATE [Concomitant]
     Active Substance: CHLORPHENIRAMINE MALEATE
     Dosage: 10 MG
     Route: 042
     Dates: start: 20200826, end: 20200826
  64. CHLORPHENIRAMINE MALEATE [Concomitant]
     Active Substance: CHLORPHENIRAMINE MALEATE
     Dosage: 10 MG
     Route: 042
     Dates: start: 20200729, end: 20200829
  65. CHLORPHENIRAMINE MALEATE [Concomitant]
     Active Substance: CHLORPHENIRAMINE MALEATE
     Dosage: 10 MILLIGRAM
     Route: 042
     Dates: start: 20201111, end: 20201111
  66. CHLORPHENIRAMINE MALEATE [Concomitant]
     Active Substance: CHLORPHENIRAMINE MALEATE
     Dosage: 10 MILLIGRAM
     Route: 042
     Dates: start: 20201104, end: 20201104
  67. AMOXICILLIN\CLAVULANATE POTASSIUM [Concomitant]
     Active Substance: AMOXICILLIN\CLAVULANATE POTASSIUM
     Indication: Pyrexia
     Dosage: UNK
     Route: 065
     Dates: start: 20200719, end: 20200723
  68. AMOXICILLIN\CLAVULANATE POTASSIUM [Concomitant]
     Active Substance: AMOXICILLIN\CLAVULANATE POTASSIUM
     Indication: Cytokine release syndrome
     Dosage: UNK
     Route: 065
     Dates: start: 20200805, end: 20200810
  69. AMOXICILLIN\CLAVULANATE POTASSIUM [Concomitant]
     Active Substance: AMOXICILLIN\CLAVULANATE POTASSIUM
     Dosage: UNK
     Route: 065
     Dates: start: 20200805, end: 20200806
  70. DEXAMETHASONE [Concomitant]
     Active Substance: DEXAMETHASONE
     Indication: Product used for unknown indication
     Dosage: 20 MG
     Route: 042
     Dates: start: 20200930, end: 20200930
  71. DOMPERIDONE [Concomitant]
     Active Substance: DOMPERIDONE
     Indication: Prophylaxis of nausea and vomiting
     Dosage: 10 MG
     Route: 065
     Dates: start: 20200708
  72. DOMPERIDONE [Concomitant]
     Active Substance: DOMPERIDONE
     Dosage: UNK
     Route: 065
     Dates: start: 20201001
  73. ENOXAPARIN [Concomitant]
     Active Substance: ENOXAPARIN
     Indication: Embolism
     Dosage: UNK
     Route: 065
     Dates: start: 20200728, end: 20200826
  74. FILGRASTIM [Concomitant]
     Active Substance: FILGRASTIM
     Indication: Neutropenia
     Dosage: UNK
     Dates: start: 20200728, end: 20200826
  75. FILGRASTIM [Concomitant]
     Active Substance: FILGRASTIM
     Dosage: UNK
     Route: 065
     Dates: start: 20200718, end: 20200718
  76. FILGRASTIM [Concomitant]
     Active Substance: FILGRASTIM
     Dosage: UNK, NEUTROPENIA PROPHYLAXIS; ;
     Dates: start: 20200703
  77. FILGRASTIM [Concomitant]
     Active Substance: FILGRASTIM
     Dosage: 300 MG
     Route: 065
     Dates: start: 20200713
  78. CALCIUM CHLORIDE\POTASSIUM CHLORIDE\SODIUM CHLORIDE\SODIUM LACTATE [Concomitant]
     Active Substance: CALCIUM CHLORIDE\POTASSIUM CHLORIDE\SODIUM CHLORIDE\SODIUM LACTATE
     Indication: Pyrexia
     Dosage: UNK
     Dates: start: 20200715, end: 20200716
  79. HYDROCORTISONE [Concomitant]
     Active Substance: HYDROCORTISONE
     Indication: Cytokine release syndrome
     Dosage: 100 MG
     Route: 042
  80. HYDROCORTISONE [Concomitant]
     Active Substance: HYDROCORTISONE
     Indication: Pyrexia
     Dosage: UNK
     Route: 042
     Dates: start: 20200805, end: 20200805
  81. IBUPROFEN [Concomitant]
     Active Substance: IBUPROFEN
     Indication: Back pain
     Dosage: UNK
     Route: 065
     Dates: start: 20201003, end: 20201011
  82. LANSOPRAZOLE [Concomitant]
     Active Substance: LANSOPRAZOLE
     Indication: Gastrointestinal disorder prophylaxis
     Dosage: UNK
     Route: 065
     Dates: start: 202003
  83. MOMETASONE [Concomitant]
     Active Substance: MOMETASONE
     Indication: Product used for unknown indication
     Dosage: UNK
     Route: 065
     Dates: start: 202003
  84. MORPHINE [Concomitant]
     Active Substance: MORPHINE
     Indication: Back pain
     Dosage: UNK
     Route: 065
     Dates: start: 20201001, end: 20201007
  85. MORPHINE SULFATE [Concomitant]
     Active Substance: MORPHINE SULFATE
     Indication: Pain in extremity
     Dosage: UNK
     Route: 048
     Dates: start: 20201001, end: 20201007
  86. MORPHINE SULFATE [Concomitant]
     Active Substance: MORPHINE SULFATE
     Dosage: UNK
     Route: 048
     Dates: start: 20201007, end: 20201010
  87. SODIUM CHLORIDE [Concomitant]
     Active Substance: SODIUM CHLORIDE
     Indication: Cytokine release syndrome
     Dosage: UNK
     Route: 065
     Dates: start: 20200805, end: 20200806
  88. ONDANSETRON [Concomitant]
     Active Substance: ONDANSETRON
     Indication: Prophylaxis of nausea and vomiting
     Dosage: UNK
     Route: 065
     Dates: start: 20201001
  89. ONDANSETRON [Concomitant]
     Active Substance: ONDANSETRON
     Dosage: UNK
     Route: 065
     Dates: start: 20200708
  90. OXYGEN [Concomitant]
     Active Substance: OXYGEN
     Indication: Hypoxia
     Dosage: UNK
     Route: 065
     Dates: start: 20200903, end: 20200903
  91. OXYGEN [Concomitant]
     Active Substance: OXYGEN
     Dosage: UNK
     Route: 065
     Dates: start: 20201001, end: 20201001
  92. PIPERACILLIN SODIUM\TAZOBACTAM SODIUM [Concomitant]
     Active Substance: PIPERACILLIN SODIUM\TAZOBACTAM SODIUM
     Indication: Pyrexia
     Dosage: UNK
     Dates: start: 20200715, end: 20200719
  93. ACETAMINOPHEN [Concomitant]
     Active Substance: ACETAMINOPHEN
     Indication: Pyrexia
     Dosage: 1000 MILLIGRAM
     Route: 048
     Dates: start: 20201104, end: 20201104
  94. ACETAMINOPHEN [Concomitant]
     Active Substance: ACETAMINOPHEN
     Indication: Cytokine release syndrome
     Dosage: 1000 MG
     Route: 042
     Dates: start: 20200805, end: 20200807
  95. ACETAMINOPHEN [Concomitant]
     Active Substance: ACETAMINOPHEN
     Indication: Pyrexia
     Dosage: 1000 MG
     Route: 048
     Dates: start: 20200808, end: 20200808
  96. ACETAMINOPHEN [Concomitant]
     Active Substance: ACETAMINOPHEN
     Dosage: 1000 MG
     Route: 048
     Dates: start: 20200808, end: 20200808
  97. ACETAMINOPHEN [Concomitant]
     Active Substance: ACETAMINOPHEN
     Dosage: UNK
     Route: 065
  98. ACETAMINOPHEN [Concomitant]
     Active Substance: ACETAMINOPHEN
     Dosage: UNK
     Route: 065
     Dates: start: 20200715, end: 20200720
  99. ACETAMINOPHEN [Concomitant]
     Active Substance: ACETAMINOPHEN
     Dosage: 1000 MG
     Route: 048
     Dates: start: 20200923, end: 20200923
  100. ACETAMINOPHEN [Concomitant]
     Active Substance: ACETAMINOPHEN
     Dosage: UNK
     Route: 042
     Dates: start: 20200805
  101. ACETAMINOPHEN [Concomitant]
     Active Substance: ACETAMINOPHEN
     Dosage: 1000 MG
     Route: 048
     Dates: start: 20200902, end: 20200902
  102. ACETAMINOPHEN [Concomitant]
     Active Substance: ACETAMINOPHEN
     Dosage: 1000 MG
     Route: 048
     Dates: start: 20200729, end: 20200729
  103. ACETAMINOPHEN [Concomitant]
     Active Substance: ACETAMINOPHEN
     Dosage: 1000 MG
     Route: 048
     Dates: start: 20201014, end: 20201014
  104. ACETAMINOPHEN [Concomitant]
     Active Substance: ACETAMINOPHEN
     Dosage: 1000 MG
     Route: 048
  105. ACETAMINOPHEN [Concomitant]
     Active Substance: ACETAMINOPHEN
     Dosage: 1000 MG
     Route: 048
     Dates: start: 20201111, end: 20201111
  106. ACETAMINOPHEN [Concomitant]
     Active Substance: ACETAMINOPHEN
     Dosage: 1000 MG
     Route: 048
     Dates: start: 20200826, end: 20200826
  107. ACETAMINOPHEN [Concomitant]
     Active Substance: ACETAMINOPHEN
     Dosage: 1000 MG
     Route: 048
     Dates: start: 20200805, end: 20200805
  108. RASBURICASE [Concomitant]
     Active Substance: RASBURICASE
     Indication: Prophylaxis
     Dosage: UNK
     Route: 065
     Dates: start: 20200708, end: 20200709
  109. RIVAROXABAN [Concomitant]
     Active Substance: RIVAROXABAN
     Indication: Embolism
     Dosage: UNK
     Route: 065
     Dates: start: 20200826, end: 20210129
  110. PIPERACILLIN SODIUM\TAZOBACTAM SODIUM [Concomitant]
     Active Substance: PIPERACILLIN SODIUM\TAZOBACTAM SODIUM
     Indication: Cytokine release syndrome
     Dosage: 4.5 G
     Route: 065
     Dates: start: 20200903
  111. PIPERACILLIN SODIUM\TAZOBACTAM SODIUM [Concomitant]
     Active Substance: PIPERACILLIN SODIUM\TAZOBACTAM SODIUM
     Dosage: UNK
     Route: 065
  112. TOCILIZUMAB [Concomitant]
     Active Substance: TOCILIZUMAB
     Indication: Cytokine release syndrome
     Dosage: UNK
     Route: 042
     Dates: start: 20200903, end: 20200903
  113. TOCILIZUMAB [Concomitant]
     Active Substance: TOCILIZUMAB
     Indication: Pyrexia
     Dosage: UNK
     Route: 042
     Dates: start: 20230805, end: 20230805

REACTIONS (13)
  - Neutropenia [Recovered/Resolved]
  - Alanine aminotransferase increased [Recovered/Resolved]
  - Cytokine release syndrome [Recovered/Resolved]
  - Neutropenia [Recovered/Resolved]
  - Neutropenia [Recovered/Resolved]
  - Febrile neutropenia [Recovered/Resolved]
  - Pyrexia [Recovered/Resolved]
  - Off label use [Unknown]
  - Product use in unapproved indication [Unknown]
  - Groin pain [Not Recovered/Not Resolved]
  - Back pain [Not Recovered/Not Resolved]
  - Underdose [Unknown]
  - Overdose [Unknown]

NARRATIVE: CASE EVENT DATE: 20200714
